FAERS Safety Report 26193708 (Version 1)
Quarter: 2025Q4

REPORT INFORMATION
  Report Type: Spontaneous
  Country: US (occurrence: None)
  Receive Date: 20251224
  Receipt Date: 20251224
  Transmission Date: 20260118
  Serious: Yes (Hospitalization)
  Sender: FDA-CTU
  Company Number: None

PATIENT
  Age: 3 Year
  Sex: Male
  Weight: 15 kg

DRUGS (4)
  1. CYCLOPHOSPHAMIDE [Suspect]
     Active Substance: CYCLOPHOSPHAMIDE
     Dates: end: 20251014
  2. FILGRASTIM [Suspect]
     Active Substance: FILGRASTIM
     Dates: end: 20251028
  3. MESNA [Suspect]
     Active Substance: MESNA
     Dates: end: 20251014
  4. THIOTEPA [Suspect]
     Active Substance: THIOTEPA

REACTIONS (4)
  - Febrile neutropenia [None]
  - Mucosal inflammation [None]
  - Hypoxia [None]
  - Neutrophil count abnormal [None]

NARRATIVE: CASE EVENT DATE: 20251024
